FAERS Safety Report 5392044-0 (Version None)
Quarter: 2007Q3

REPORT INFORMATION
  Report Type: 
  Country: None (occurrence: None)
  Receive Date: 20070720
  Receipt Date: 20070710
  Transmission Date: 20080115
  Serious: Yes (Hospitalization)
  Sender: FDA-Public Use
  Company Number: SE-JNJFOC-20070702337

PATIENT
  Age: 62 Year
  Sex: Female

DRUGS (7)
  1. REMICADE [Suspect]
     Indication: RHEUMATOID ARTHRITIS
     Route: 042
  2. METHOTREXATE [Suspect]
     Indication: DRUG USE FOR UNKNOWN INDICATION
  3. CELEBRA [Suspect]
     Indication: RHEUMATOID ARTHRITIS
  4. PREDNISOLONE [Concomitant]
  5. FENANTOIN [Concomitant]
  6. ENALAPRIL ACTAVIS [Concomitant]
  7. FOLACIN [Concomitant]

REACTIONS (2)
  - LEUKOARAIOSIS [None]
  - TRANSIENT ISCHAEMIC ATTACK [None]
